FAERS Safety Report 19111514 (Version 1)
Quarter: 2021Q2

REPORT INFORMATION
  Report Type: Spontaneous
  Country: US (occurrence: US)
  Receive Date: 20210409
  Receipt Date: 20210409
  Transmission Date: 20210717
  Serious: Yes (Hospitalization)
  Sender: FDA-Public Use
  Company Number: None

PATIENT
  Age: 63 Year
  Sex: Male
  Weight: 118.3 kg

DRUGS (3)
  1. LEUCOVORIN CALCIUM. [Suspect]
     Active Substance: LEUCOVORIN CALCIUM
     Dates: end: 20210323
  2. ELOXATIN [Suspect]
     Active Substance: OXALIPLATIN
     Dates: end: 20210323
  3. 5?FLUOROURACIL (5?FU) [Suspect]
     Active Substance: FLUOROURACIL
     Dates: end: 20210323

REACTIONS (3)
  - Clostridium difficile infection [None]
  - Culture stool positive [None]
  - Diarrhoea [None]

NARRATIVE: CASE EVENT DATE: 20210401
